FAERS Safety Report 17527904 (Version 1)
Quarter: 2020Q1

REPORT INFORMATION
  Report Type: Report from Study
  Country: CA (occurrence: CA)
  Receive Date: 20200311
  Receipt Date: 20200311
  Transmission Date: 20200409
  Serious: Yes (Other)
  Sender: FDA-Public Use
  Company Number: CA-PFIZER INC-2020101888

PATIENT
  Age: 56 Year
  Sex: Female

DRUGS (16)
  1. HUMIRA [Concomitant]
     Active Substance: ADALIMUMAB
     Route: 065
  2. NAPROXEN. [Concomitant]
     Active Substance: NAPROXEN
  3. METHOTREXATE SODIUM. [Suspect]
     Active Substance: METHOTREXATE SODIUM
  4. COSENTYX [Suspect]
     Active Substance: SECUKINUMAB
     Dosage: 150 MG, 1X/DAY
     Route: 058
  5. CIMZIA [Concomitant]
     Active Substance: CERTOLIZUMAB PEGOL
  6. LEFLUNOMIDE. [Suspect]
     Active Substance: LEFLUNOMIDE
  7. CELEBREX [Concomitant]
     Active Substance: CELECOXIB
  8. STELARA [Concomitant]
     Active Substance: USTEKINUMAB
  9. POTASSIUM CHLORIDE. [Suspect]
     Active Substance: POTASSIUM CHLORIDE
     Dosage: 600 MG, WEEKLY
  10. HYDROXYCHLOROQUINE SULFATE. [Concomitant]
     Active Substance: HYDROXYCHLOROQUINE SULFATE
     Route: 065
  11. SULFASALAZINE. [Concomitant]
     Active Substance: SULFASALAZINE
     Route: 065
  12. BISOPROLOL [Suspect]
     Active Substance: BISOPROLOL
     Dosage: 5 MG, UNK
  13. COSENTYX [Suspect]
     Active Substance: SECUKINUMAB
     Indication: PSORIATIC ARTHROPATHY
     Dosage: 150 MG, WEEKLY
     Route: 058
  14. OTEZLA [Concomitant]
     Active Substance: APREMILAST
     Route: 065
  15. TYLENOL [Concomitant]
     Active Substance: ACETAMINOPHEN
     Route: 065
  16. CICLOSPORIN [Suspect]
     Active Substance: CYCLOSPORINE

REACTIONS (12)
  - Back pain [Unknown]
  - Arthralgia [Unknown]
  - Infective tenosynovitis [Unknown]
  - Pain in extremity [Unknown]
  - Blood pressure increased [Unknown]
  - Therapeutic response shortened [Unknown]
  - Joint swelling [Unknown]
  - Nasal congestion [Unknown]
  - Pain [Unknown]
  - Erythema [Unknown]
  - Headache [Unknown]
  - Skin infection [Unknown]
